FAERS Safety Report 24971504 (Version 2)
Quarter: 2025Q1

REPORT INFORMATION
  Report Type: Spontaneous
  Country: GB (occurrence: GB)
  Receive Date: 20250214
  Receipt Date: 20250327
  Transmission Date: 20250409
  Serious: No
  Sender: PFIZER
  Company Number: GB-PFIZER INC-PV202500015120

PATIENT
  Age: 10 Year
  Sex: Male

DRUGS (1)
  1. GENOTROPIN [Suspect]
     Active Substance: SOMATROPIN
     Indication: Growth hormone deficiency
     Dosage: 1 MG, ONCE DAILY
     Route: 058
     Dates: start: 20171014

REACTIONS (3)
  - Drug dose omission by device [Recovered/Resolved]
  - Device information output issue [Recovered/Resolved]
  - Device power source issue [Recovered/Resolved]

NARRATIVE: CASE EVENT DATE: 20250205
